FAERS Safety Report 17407679 (Version 1)
Quarter: 2020Q1

REPORT INFORMATION
  Report Type: Spontaneous
  Country: GB (occurrence: JP)
  Receive Date: 20200212
  Receipt Date: 20200212
  Transmission Date: 20200409
  Serious: Yes (Death, Other)
  Sender: FDA-Public Use
  Company Number: JP-ASTELLAS-2020US005154

PATIENT
  Age: 43 Year
  Sex: Female
  Weight: 38 kg

DRUGS (1)
  1. ERLOTINIB [Suspect]
     Active Substance: ERLOTINIB
     Indication: PANCREATIC CARCINOMA
     Route: 048
     Dates: start: 201701

REACTIONS (2)
  - Gastrointestinal haemorrhage [Unknown]
  - Disease progression [Fatal]

NARRATIVE: CASE EVENT DATE: 201710
